FAERS Safety Report 6785237-9 (Version None)
Quarter: 2010Q2

REPORT INFORMATION
  Report Type: 
  Country: None (occurrence: None)
  Receive Date: 20100622
  Receipt Date: 20100622
  Transmission Date: 20101027
  Serious: Yes (Death, Life-Threatening, Hospitalization, Other)
  Sender: FDA-Public Use
  Company Number: None

PATIENT
  Age: 23 Year
  Sex: Male
  Weight: 68.0396 kg

DRUGS (1)
  1. ACCUTANE [Suspect]
     Indication: ACNE
     Dosage: 1 CAPSULE 3 TIMES A WEEK
     Dates: start: 20010525, end: 20030125

REACTIONS (15)
  - ABNORMAL BEHAVIOUR [None]
  - ANGER [None]
  - APATHY [None]
  - COMPLETED SUICIDE [None]
  - CONFUSIONAL STATE [None]
  - CRIME [None]
  - DISORIENTATION [None]
  - DISTURBANCE IN ATTENTION [None]
  - FEELING ABNORMAL [None]
  - GUN SHOT WOUND [None]
  - MEMORY IMPAIRMENT [None]
  - PANIC ATTACK [None]
  - PRODUCT LABEL ISSUE [None]
  - PRODUCT QUALITY ISSUE [None]
  - VERTIGO [None]
